FAERS Safety Report 10009804 (Version 2)
Quarter: 2014Q1

REPORT INFORMATION
  Report Type: Spontaneous
  Country: US (occurrence: US)
  Receive Date: 20140312
  Receipt Date: 20140312
  Transmission Date: 20141002
  Serious: No
  Sender: FDA-Public Use
  Company Number: US-INCYTE CORPORATION-2012IN002515

PATIENT
  Age: 38 Year
  Sex: Female
  Weight: 88.44 kg

DRUGS (5)
  1. JAKAFI [Suspect]
     Indication: MYELOFIBROSIS
     Dosage: 20 MG, BID
     Route: 048
     Dates: start: 20121010
  2. ATENOLOL [Suspect]
  3. NEXIUM [Suspect]
  4. MULTIVITAMINS [Suspect]
  5. ASPIRIN [Suspect]
     Dosage: 81 UNK, UNK

REACTIONS (1)
  - Migraine [Unknown]
